FAERS Safety Report 6644429-X (Version None)
Quarter: 2010Q1

REPORT INFORMATION
  Report Type: 
  Country: None (occurrence: None)
  Receive Date: 20100319
  Receipt Date: 20100319
  Transmission Date: 20100710
  Serious: Yes (Other)
  Sender: FDA-Public Use
  Company Number: None

PATIENT
  Age: 10 Year
  Sex: Female

DRUGS (1)
  1. ZONISAMIDE [Suspect]
     Indication: EPILEPSY
     Dosage: 3 PO QD
     Route: 048
     Dates: start: 20100212, end: 20100311

REACTIONS (1)
  - CONVULSION [None]
